FAERS Safety Report 4772804-7 (Version None)
Quarter: 2005Q3

REPORT INFORMATION
  Report Type: 
  Country: None (occurrence: None)
  Receive Date: 20050915
  Receipt Date: 20050915
  Transmission Date: 20060218
  Serious: Yes (Hospitalization)
  Sender: FDA-Public Use
  Company Number: None

PATIENT
  Age: 35 Year
  Sex: Male
  Weight: 168 kg

DRUGS (2)
  1. WARFARIN SODIUM [Suspect]
     Indication: ANTICOAGULANT THERAPY
     Dosage: 15MG PO DAILY
     Route: 048
     Dates: start: 19970101
  2. LEVOTHYROXINE SODIUM [Concomitant]

REACTIONS (3)
  - HAEMATURIA [None]
  - INTERNATIONAL NORMALISED RATIO ABNORMAL [None]
  - PROTHROMBIN TIME PROLONGED [None]
